FAERS Safety Report 6993811-X (Version None)
Quarter: 2010Q3

REPORT INFORMATION
  Report Type: 
  Country: None (occurrence: None)
  Receive Date: 20100917
  Receipt Date: 20100517
  Transmission Date: 20110219
  Serious: No
  Sender: FDA-Public Use
  Company Number: US-ASTRAZENECA-2010SE21267

PATIENT
  Age: 41 Year
  Sex: Female
  Weight: 111.1 kg

DRUGS (8)
  1. SEROQUEL [Suspect]
     Indication: BIPOLAR DISORDER
     Route: 048
     Dates: start: 20060101, end: 20100503
  2. SEROQUEL [Suspect]
     Route: 048
     Dates: start: 20100503
  3. AMBIEN [Concomitant]
     Route: 048
  4. ALPRAZOLAM [Concomitant]
     Route: 048
  5. POTASSIUM [Concomitant]
     Route: 048
  6. LASIX [Concomitant]
     Dosage: DAILY
  7. CYCLOBENZAPRINE [Concomitant]
  8. TRAMADOL [Concomitant]

REACTIONS (10)
  - AGITATION [None]
  - ANGER [None]
  - APHAGIA [None]
  - DEPRESSION [None]
  - DYSKINESIA [None]
  - FEAR OF DISEASE [None]
  - INCORRECT DOSE ADMINISTERED [None]
  - MANIA [None]
  - MUSCLE TWITCHING [None]
  - VOMITING [None]
